FAERS Safety Report 11929418 (Version 1)
Quarter: 2016Q1

REPORT INFORMATION
  Report Type: Spontaneous
  Country: US (occurrence: None)
  Receive Date: 20160119
  Receipt Date: 20160119
  Transmission Date: 20160526
  Serious: Yes (Hospitalization)
  Sender: FDA-Public Use
  Company Number: None

PATIENT
  Age: 37 Year
  Sex: Female
  Weight: 61.24 kg

DRUGS (1)
  1. ZONISAMIDE. [Suspect]
     Active Substance: ZONISAMIDE
     Indication: TEMPORAL LOBE EPILEPSY
     Route: 048
     Dates: start: 20110301, end: 20151231

REACTIONS (8)
  - Bronchitis [None]
  - Blood potassium decreased [None]
  - Upper respiratory tract infection [None]
  - Respiratory alkalosis [None]
  - Chest pain [None]
  - No therapeutic response [None]
  - Metabolic acidosis [None]
  - Gait disturbance [None]

NARRATIVE: CASE EVENT DATE: 20151219
